FAERS Safety Report 5175929-X (Version None)
Quarter: 2006Q4

REPORT INFORMATION
  Report Type: 
  Country: None (occurrence: None)
  Receive Date: 20061215
  Receipt Date: 20060710
  Transmission Date: 20070319
  Serious: No
  Sender: FDA-Public Use
  Company Number: US-AMGEN-KDL185668

PATIENT
  Sex: Female

DRUGS (14)
  1. ENBREL [Suspect]
     Indication: PSORIATIC ARTHROPATHY
     Route: 058
     Dates: start: 20060501
  2. DEPO-PROVERA [Concomitant]
  3. PREDNISONE TAB [Concomitant]
     Dates: start: 19990101
  4. IMURAN [Concomitant]
  5. CELEBREX [Concomitant]
  6. DIOVAN HCT [Concomitant]
     Dates: start: 20060101
  7. DIOVAN HCT [Concomitant]
  8. ZOLOFT [Concomitant]
     Dates: start: 19970101
  9. CALCIUM WITH VITAMIN D [Concomitant]
  10. IRON [Concomitant]
  11. ACTONEL [Concomitant]
  12. VITAMIN CAP [Concomitant]
  13. TYLENOL [Concomitant]
  14. ADVIL [Concomitant]

REACTIONS (1)
  - MENSTRUAL DISORDER [None]
